FAERS Safety Report 8343825-2 (Version None)
Quarter: 2012Q2

REPORT INFORMATION
  Report Type: 
  Country: None (occurrence: None)
  Receive Date: 20120508
  Receipt Date: 20120427
  Transmission Date: 20120825
  Serious: No
  Sender: FDA-Public Use
  Company Number: US-VERTEX PHARMACEUTICALS INC.-AE-2012-005744

PATIENT
  Sex: Male

DRUGS (6)
  1. PEGASYS [Concomitant]
     Indication: HEPATITIS C
     Dates: start: 20120203
  2. ACYCLOVIR [Concomitant]
  3. VIAGRA [Concomitant]
  4. MELOXICAM [Concomitant]
  5. RIBASPHERE [Concomitant]
     Indication: HEPATITIS C
     Route: 048
     Dates: start: 20120203
  6. INCIVEK [Suspect]
     Indication: HEPATITIS C
     Route: 048
     Dates: start: 20120203, end: 20120427

REACTIONS (3)
  - DEPRESSED MOOD [None]
  - DRY SKIN [None]
  - MUSCLE STRAIN [None]
